FAERS Safety Report 16251059 (Version 2)
Quarter: 2019Q2

REPORT INFORMATION
  Report Type: Spontaneous
  Country: JP (occurrence: JP)
  Receive Date: 20190429
  Receipt Date: 20190528
  Transmission Date: 20190711
  Serious: Yes (Hospitalization)
  Sender: FDA-Public Use
  Company Number: JP-MYLANLABS-2019M1039807

PATIENT
  Age: 43 Year
  Sex: Male

DRUGS (5)
  1. CYCLOSPORIN A [Suspect]
     Active Substance: CYCLOSPORINE
     Indication: DERMATOMYOSITIS
     Dosage: 12H ADMINISTRATION TO MAINTAIN 1000 NG/ML AT 2H AND 200-300 NG/ML AT TROUGH LEVELS)
     Route: 042
  2. TOFACITINIB [Suspect]
     Active Substance: TOFACITINIB
     Indication: DERMATOMYOSITIS
     Route: 065
  3. PREDNISOLONE. [Suspect]
     Active Substance: PREDNISOLONE
     Indication: DERMATOMYOSITIS
     Route: 065
  4. CYCLOPHOSPHAMIDE. [Suspect]
     Active Substance: CYCLOPHOSPHAMIDE
     Indication: DERMATOMYOSITIS
     Dosage: 500-1000MG THERAPY BIWEEKLY
     Route: 042
  5. TOFACITINIB [Suspect]
     Active Substance: TOFACITINIB
     Indication: INTERSTITIAL LUNG DISEASE

REACTIONS (10)
  - Epstein-Barr virus infection [Recovered/Resolved]
  - Fungal infection [Recovering/Resolving]
  - Respiratory tract infection bacterial [Recovering/Resolving]
  - Herpes zoster [Recovering/Resolving]
  - Epstein-Barr virus associated lymphoproliferative disorder [Recovered/Resolved]
  - Treatment failure [Recovering/Resolving]
  - Adenovirus infection [Recovering/Resolving]
  - Cystitis viral [Recovering/Resolving]
  - Cytomegalovirus infection [Recovering/Resolving]
  - Urinary tract infection bacterial [Recovering/Resolving]
